FAERS Safety Report 4426344-5 (Version None)
Quarter: 2004Q3

REPORT INFORMATION
  Report Type: 
  Country: None (occurrence: None)
  Receive Date: 20040810
  Receipt Date: 20040804
  Transmission Date: 20050211
  Serious: Yes (Life-Threatening, Hospitalization)
  Sender: FDA-Public Use
  Company Number: TCI2003A03824

PATIENT
  Age: 56 Year
  Sex: Male

DRUGS (23)
  1. ACTOS [Suspect]
     Indication: DIABETES MELLITUS NON-INSULIN-DEPENDENT
     Dosage: 30 MG (30 MG, 1 D) PER ORAL
     Route: 047
     Dates: start: 20030318, end: 20030802
  2. ACTOS [Suspect]
     Indication: DIABETES MELLITUS NON-INSULIN-DEPENDENT
     Dosage: 30 MG (30 MG, 1 D) PER ORAL
     Route: 047
     Dates: start: 20030930, end: 20040313
  3. BASEN (VOGLIBOSE) [Suspect]
     Indication: DIABETES MELLITUS NON-INSULIN-DEPENDENT
     Dosage: 0.9 (0.9 MG, 1D) PER ORAL
     Route: 048
     Dates: start: 20030930, end: 20031226
  4. GLUCOBAY [Suspect]
     Indication: DIABETES MELLITUS NON-INSULIN-DEPENDENT
     Dosage: 300 MG (300 MG, 1 D) PER ORAL
     Route: 048
     Dates: start: 20020326, end: 20030802
  5. BLOPRESS (CANDESARTAN CILEXETIL) [Concomitant]
  6. GLIBENCLAMIDE [Concomitant]
  7. CIBENZOLINE SUCCINATE [Concomitant]
  8. BENIDIPINE HYDROCHLORIDE [Concomitant]
  9. METILDIGOXIN [Concomitant]
  10. ASPIRIN [Concomitant]
  11. CIMETIDINE [Concomitant]
  12. DOXAZOSIN MESYLATE [Concomitant]
  13. NICORANDIL [Concomitant]
  14. METFORMIN HCL [Concomitant]
  15. VALSARTAN [Concomitant]
  16. DILTIAZEM HYDROCHLORIDE [Concomitant]
  17. CARVEDILOL [Concomitant]
  18. BUFFERIN [Concomitant]
  19. NIZATIDINE [Concomitant]
  20. PRAZOSIN HYDROCHLORIDE [Concomitant]
  21. EPALRESTAT [Concomitant]
  22. AMLODIPINE BESYLATE [Concomitant]
  23. LOSARTAN POTASSIUM [Concomitant]

REACTIONS (12)
  - ALANINE AMINOTRANSFERASE INCREASED [None]
  - ALCOHOLIC LIVER DISEASE [None]
  - ASPARTATE AMINOTRANSFERASE INCREASED [None]
  - BLOOD ALKALINE PHOSPHATASE INCREASED [None]
  - BLOOD BILIRUBIN INCREASED [None]
  - BUNDLE BRANCH BLOCK RIGHT [None]
  - DEPRESSED LEVEL OF CONSCIOUSNESS [None]
  - FALL [None]
  - GAMMA-GLUTAMYLTRANSFERASE INCREASED [None]
  - GASTRIC ULCER [None]
  - GENERAL PHYSICAL CONDITION ABNORMAL [None]
  - SHOCK HAEMORRHAGIC [None]
